FAERS Safety Report 5332212-7 (Version None)
Quarter: 2007Q2

REPORT INFORMATION
  Report Type: 
  Country: None (occurrence: None)
  Receive Date: 20070306
  Receipt Date: 20060320
  Transmission Date: 20071010
  Serious: Yes (Hospitalization)
  Sender: FDA-Public Use
  Company Number: A03200601563

PATIENT
  Age: 74 Year
  Sex: Male
  Weight: 83.099 kg

DRUGS (4)
  1. PLAVIX [Suspect]
     Indication: ANTIPLATELET THERAPY
     Dosage: 300 MG (INITIAL DOSE) FOLLOWED BY 75MG DAILY - ORAL
     Route: 048
     Dates: start: 20050218, end: 20050417
  2. ANGIOMAX [Suspect]
     Indication: ACUTE CORONARY SYNDROME
     Dosage: BOLUS DOSE OF 1.7 ML FOLLOWED BY AN INFUSION AT THE RATE OF 4.2 ML/HR - INTRAVENOUS NOS
     Route: 042
     Dates: start: 20050218, end: 20050218
  3. ASPIRIN [Suspect]
     Indication: ANTIPLATELET THERAPY
     Dosage: 325 MG QD - ORAL
     Route: 048
     Dates: start: 20050218, end: 20050417
  4. PREDNISONE [Concomitant]

REACTIONS (3)
  - DUODENAL ULCER HAEMORRHAGE [None]
  - HAEMOGLOBIN DECREASED [None]
  - OESOPHAGITIS [None]
